FAERS Safety Report 13588824 (Version 1)
Quarter: 2017Q2

REPORT INFORMATION
  Report Type: Other
  Country: DE (occurrence: DE)
  Receive Date: 20170529
  Receipt Date: 20170529
  Transmission Date: 20170830
  Serious: Yes (Hospitalization, Other)
  Sender: FDA-Public Use
  Company Number: DE-HETERO LABS LTD-2021306

PATIENT
  Age: 1 Day
  Sex: Male

DRUGS (3)
  1. CARBAMAZEPINE. [Suspect]
     Active Substance: CARBAMAZEPINE
     Route: 064
  2. LEVETIRACETAM. [Suspect]
     Active Substance: LEVETIRACETAM
     Indication: EPILEPSY
     Route: 064
  3. ZONEGRAN [Suspect]
     Active Substance: ZONISAMIDE
     Route: 064

REACTIONS (8)
  - Tachyarrhythmia [Recovered/Resolved]
  - Pulmonary hypertension [Recovered/Resolved]
  - Neonatal pneumonia [Recovered/Resolved]
  - Disseminated intravascular coagulation in newborn [Recovered/Resolved]
  - Small for dates baby [Recovered/Resolved]
  - Respiratory disorder neonatal [Recovered/Resolved]
  - Premature baby [Recovered/Resolved]
  - Neonatal hypotension [Recovered/Resolved]
